FAERS Safety Report 9095063 (Version 2)
Quarter: 2013Q2

REPORT INFORMATION
  Report Type: Report from Study
  Country: BR (occurrence: BR)
  Receive Date: 20130201
  Receipt Date: 20130425
  Transmission Date: 20140414
  Serious: Yes (Other)
  Sender: FDA-Public Use
  Company Number: BR-SANOFI-AVENTIS-2013SA005640

PATIENT
  Sex: Female
  Weight: 62 kg

DRUGS (4)
  1. INSULIN GLARGINE [Suspect]
     Indication: DIABETES MELLITUS
     Dosage: THERAPY START DATE: 12 OR 13 YEARS AGO.
     Route: 058
  2. AUTOPEN 24 [Suspect]
     Indication: DEVICE THERAPY
  3. JANUMET [Concomitant]
     Indication: DIABETES MELLITUS
     Route: 048
  4. AMARYL [Concomitant]
     Indication: DIABETES MELLITUS
     Route: 048

REACTIONS (5)
  - Nephrolithiasis [Unknown]
  - Hypertension [Unknown]
  - Blood cholesterol increased [Unknown]
  - Hyperglycaemia [Recovered/Resolved]
  - Headache [Recovered/Resolved]
